FAERS Safety Report 5580523-2 (Version None)
Quarter: 2007Q4

REPORT INFORMATION
  Report Type: 
  Country: None (occurrence: None)
  Receive Date: 20071130
  Receipt Date: 20070629
  Transmission Date: 20080405
  Serious: No
  Sender: FDA-Public Use
  Company Number: US200707004168

PATIENT
  Age: 71 Year
  Sex: Male
  Weight: 98.4 kg

DRUGS (7)
  1. BYETTA [Suspect]
     Indication: DIABETES MELLITUS
     Dosage: 5 UG, 2/D, SUBCUTANEOUS ; 5 UG, 2/D, SUBCUTANEOUS
     Route: 058
     Dates: start: 20060101, end: 20070501
  2. BYETTA [Suspect]
     Indication: DIABETES MELLITUS
     Dosage: 5 UG, 2/D, SUBCUTANEOUS ; 5 UG, 2/D, SUBCUTANEOUS
     Route: 058
     Dates: start: 20070501
  3. GLUCOVANCE [Concomitant]
  4. ACTOS [Concomitant]
  5. ASPIRIN [Concomitant]
  6. INSULIN (INSULIN) [Concomitant]
  7. ANTIVERT [Concomitant]

REACTIONS (11)
  - ANOREXIA [None]
  - ANXIETY [None]
  - BLOOD GLUCOSE INCREASED [None]
  - DIZZINESS [None]
  - DRUG EFFECT DECREASED [None]
  - INJECTION SITE BRUISING [None]
  - INJECTION SITE IRRITATION [None]
  - INJECTION SITE PAIN [None]
  - MALAISE [None]
  - NERVOUSNESS [None]
  - WEIGHT DECREASED [None]
